FAERS Safety Report 18207705 (Version 2)
Quarter: 2020Q3

REPORT INFORMATION
  Report Type: Spontaneous
  Country: US (occurrence: US)
  Receive Date: 20200828
  Receipt Date: 20200902
  Transmission Date: 20201103
  Serious: No
  Sender: FDA-Public Use
  Company Number: US-PFIZER INC-2020332022

PATIENT
  Age: 59 Year
  Sex: Female

DRUGS (1)
  1. MARCAINE [Suspect]
     Active Substance: BUPIVACAINE HYDROCHLORIDE
     Indication: SPINAL ANAESTHESIA
     Dosage: UNK (BUPIVACAINE ^2%^  DEXTROSE)
     Dates: start: 20200825

REACTIONS (1)
  - Drug ineffective [Unknown]

NARRATIVE: CASE EVENT DATE: 20200825
